FAERS Safety Report 18777482 (Version 3)
Quarter: 2021Q4

REPORT INFORMATION
  Report Type: Report from Study
  Country: US (occurrence: US)
  Receive Date: 20210123
  Receipt Date: 20211105
  Transmission Date: 20220303
  Serious: Yes (Other)
  Sender: FDA-Public Use
  Company Number: US-TAKEDA-2021TUS003243

PATIENT
  Sex: Female
  Weight: 105.22 kg

DRUGS (25)
  1. HUMAN IMMUNOGLOBULIN G [Suspect]
     Active Substance: HUMAN IMMUNOGLOBULIN G
     Indication: Immunodeficiency common variable
     Dosage: 22 GRAM, 1/WEEK
     Route: 058
     Dates: start: 20171108
  2. ACETAMINOPHEN [Concomitant]
     Active Substance: ACETAMINOPHEN
  3. DIPHENHYDRAMINE [Concomitant]
     Active Substance: DIPHENHYDRAMINE
  4. EPINEPHRINE [Concomitant]
     Active Substance: EPINEPHRINE
  5. LMX4 [Concomitant]
     Active Substance: LIDOCAINE
  6. LEXAPRO [Concomitant]
     Active Substance: ESCITALOPRAM OXALATE
  7. XIIDRA [Concomitant]
     Active Substance: LIFITEGRAST
  8. METHOTREXATE [Concomitant]
     Active Substance: METHOTREXATE
  9. HYDROCORTISONE [Concomitant]
     Active Substance: HYDROCORTISONE
  10. FOLIC ACID [Concomitant]
     Active Substance: FOLIC ACID
  11. ELIQUIS [Concomitant]
     Active Substance: APIXABAN
  12. VITAMIN D3 [Concomitant]
     Active Substance: CHOLECALCIFEROL
  13. ZOLPIDEM [Concomitant]
     Active Substance: ZOLPIDEM TARTRATE
  14. FUROSEMIDE [Concomitant]
     Active Substance: FUROSEMIDE
  15. AMOXICILLIN [Concomitant]
     Active Substance: AMOXICILLIN
  16. METAXALL [Concomitant]
     Active Substance: METAXALONE
  17. KLOR-CON [Concomitant]
     Active Substance: POTASSIUM CHLORIDE
  18. PROTONIX [Concomitant]
     Active Substance: PANTOPRAZOLE SODIUM
  19. ZYRTEC [Concomitant]
     Active Substance: CETIRIZINE HYDROCHLORIDE
  20. COENZYME Q10 [Concomitant]
     Active Substance: DIETARY SUPPLEMENT\UBIDECARENONE
  21. MAGNESIUM [Concomitant]
     Active Substance: MAGNESIUM
  22. SINGULAIR [Concomitant]
     Active Substance: MONTELUKAST SODIUM
  23. VITAMIN C [Concomitant]
     Active Substance: ASCORBIC ACID
  24. VITAMIN E [Concomitant]
     Active Substance: .ALPHA.-TOCOPHEROL
  25. Lmx [Concomitant]

REACTIONS (4)
  - Kidney infection [Unknown]
  - Swelling [Unknown]
  - Weight increased [Unknown]
  - Sinusitis [Unknown]
